FAERS Safety Report 9188026 (Version 1)
Quarter: 2013Q1

REPORT INFORMATION
  Report Type: Spontaneous
  Country: US (occurrence: US)
  Receive Date: 20130325
  Receipt Date: 20130325
  Transmission Date: 20140127
  Serious: Yes (Other)
  Sender: FDA-Public Use
  Company Number: US-VIIV HEALTHCARE LIMITED-A1016939A

PATIENT
  Age: 61 Year
  Sex: Male
  Weight: 81.8 kg

DRUGS (2)
  1. COMBIVIR [Suspect]
     Indication: HIV INFECTION
     Route: 048
     Dates: start: 20120328, end: 201208
  2. ARANESP [Concomitant]

REACTIONS (2)
  - Transfusion [Recovered/Resolved]
  - Haemoglobin decreased [Recovered/Resolved]
